FAERS Safety Report 9554847 (Version 2)
Quarter: 2013Q4

REPORT INFORMATION
  Report Type: Spontaneous
  Country: US (occurrence: US)
  Receive Date: 20130926
  Receipt Date: 20131118
  Transmission Date: 20140711
  Serious: Yes (Hospitalization, Other)
  Sender: FDA-Public Use
  Company Number: US-BIOGENIDEC-2013BI089768

PATIENT
  Age: 35 Year
  Sex: Female

DRUGS (4)
  1. TECFIDERA [Suspect]
     Indication: PRODUCT USED FOR UNKNOWN INDICATION
  2. ARMOUR THYROID [Concomitant]
  3. GABAPENTIN [Concomitant]
     Indication: NEURALGIA
  4. PROZAC [Concomitant]
     Indication: DEPRESSION

REACTIONS (3)
  - Myocarditis [Unknown]
  - Cholecystectomy [Unknown]
  - Ulcer [Unknown]
